FAERS Safety Report 6539695-5 (Version None)
Quarter: 2010Q1

REPORT INFORMATION
  Report Type: 
  Country: None (occurrence: None)
  Receive Date: 20100115
  Receipt Date: 20100105
  Transmission Date: 20100710
  Serious: Yes (Hospitalization, Other)
  Sender: FDA-Public Use
  Company Number: US-SANOFI-AVENTIS-2010SA001641

PATIENT
  Sex: Female

DRUGS (4)
  1. LANTUS [Suspect]
     Indication: TYPE 2 DIABETES MELLITUS
     Dosage: DOSE:40 UNIT(S)
     Route: 058
  2. LANTUS [Suspect]
     Dosage: DOSE:40 UNIT(S)
     Route: 058
  3. SOLOSTAR [Suspect]
     Indication: TYPE 2 DIABETES MELLITUS
  4. SOLOSTAR [Suspect]

REACTIONS (6)
  - BLOOD GLUCOSE INCREASED [None]
  - BREAST NEOPLASM [None]
  - CONVULSION [None]
  - GASTROINTESTINAL NEOPLASM [None]
  - HAEMORRHAGE [None]
  - LOSS OF CONSCIOUSNESS [None]
